FAERS Safety Report 7058458-8 (Version None)
Quarter: 2010Q4

REPORT INFORMATION
  Report Type: 
  Country: None (occurrence: None)
  Receive Date: 20101022
  Receipt Date: 20101014
  Transmission Date: 20110411
  Serious: Yes (Other)
  Sender: FDA-Public Use
  Company Number: GXKR2010US11635

PATIENT
  Age: 29 Year
  Sex: Male

DRUGS (1)
  1. PREDNISONE [Suspect]
     Route: 065

REACTIONS (1)
  - CHORIORETINOPATHY [None]
